FAERS Safety Report 6676491-2 (Version None)
Quarter: 2010Q2

REPORT INFORMATION
  Report Type: 
  Country: None (occurrence: None)
  Receive Date: 20100412
  Receipt Date: 20100406
  Transmission Date: 20101027
  Serious: Yes (Life-Threatening, Hospitalization, Disabling, Other)
  Sender: FDA-Public Use
  Company Number: PHHY2010GB11108

PATIENT
  Sex: Male

DRUGS (5)
  1. CLOZARIL [Suspect]
     Indication: SCHIZOPHRENIA
     Dosage: 500 MG DAILY
     Dates: start: 20010701, end: 20100101
  2. SULPIRIDE [Concomitant]
     Dosage: 200 MG, BID
     Route: 048
  3. LACTULOSE [Concomitant]
     Dosage: 10 ML, BID
     Route: 048
  4. PARACETAMOL [Concomitant]
     Indication: BACK PAIN
     Dosage: 1 G, PRN
     Route: 048
  5. DICLOFENAC SODIUM [Concomitant]
     Indication: BACK PAIN
     Dosage: 75 MG, BID
     Route: 048

REACTIONS (17)
  - ABDOMINAL DISTENSION [None]
  - ABDOMINAL PAIN [None]
  - BLOOD AMYLASE DECREASED [None]
  - BLOOD SODIUM DECREASED [None]
  - C-REACTIVE PROTEIN INCREASED [None]
  - LYMPHOCYTE COUNT DECREASED [None]
  - MONOCYTE COUNT INCREASED [None]
  - NEUTROPHIL COUNT INCREASED [None]
  - PLATELET COUNT INCREASED [None]
  - RED BLOOD CELL COUNT DECREASED [None]
  - RED CELL DISTRIBUTION WIDTH INCREASED [None]
  - RENAL FAILURE ACUTE [None]
  - SEPSIS [None]
  - SMALL INTESTINAL OBSTRUCTION [None]
  - VOLVULUS [None]
  - VOMITING [None]
  - WHITE BLOOD CELL COUNT INCREASED [None]
